FAERS Safety Report 10679285 (Version 1)
Quarter: 2014Q4

REPORT INFORMATION
  Report Type: Spontaneous
  Country: US (occurrence: None)
  Receive Date: 20141224
  Receipt Date: 20141224
  Transmission Date: 20150529
  Serious: Yes (Other)
  Sender: FDA-Public Use
  Company Number: None

PATIENT
  Age: 68 Year
  Sex: Female
  Weight: 72.7 kg

DRUGS (1)
  1. PROLIA [Suspect]
     Active Substance: DENOSUMAB
     Indication: OSTEOPOROSIS
     Dosage: PROLIA  60MG/ML SYRINGE   60MG  EVERY 6MONTHS  SUBCUTANEOUS
     Route: 058
     Dates: start: 201406

REACTIONS (4)
  - Swollen tongue [None]
  - Paraesthesia oral [None]
  - Throat tightness [None]
  - Hypovitaminosis [None]

NARRATIVE: CASE EVENT DATE: 201410
